FAERS Safety Report 8338411-4 (Version None)
Quarter: 2012Q2

REPORT INFORMATION
  Report Type: 
  Country: None (occurrence: None)
  Receive Date: 20120504
  Receipt Date: 20120427
  Transmission Date: 20120825
  Serious: Yes (Other)
  Sender: FDA-Public Use
  Company Number: US-ABBOTT-12P-163-0931197-00

PATIENT
  Sex: Female
  Weight: 68.1 kg

DRUGS (11)
  1. LIPITOR [Concomitant]
     Indication: BLOOD CHOLESTEROL
  2. SYNTHROID [Suspect]
     Indication: HYPOTHYROIDISM
     Dates: start: 19990101
  3. FISH OIL [Concomitant]
     Indication: SUPPLEMENTATION THERAPY
  4. SYNTHROID [Suspect]
     Indication: ANTI-THYROID ANTIBODY POSITIVE
     Dates: start: 20120412
  5. NORTRIPTYLINE HCL [Concomitant]
     Indication: FIBROMYALGIA
  6. BYSTOLIC [Concomitant]
     Indication: BLOOD PRESSURE
  7. LOSARTAN POTASSIUM [Concomitant]
     Indication: BLOOD PRESSURE
  8. VITAMIN D [Concomitant]
     Indication: VITAMIN SUPPLEMENTATION
  9. VITAMIN C [Concomitant]
     Indication: VITAMIN SUPPLEMENTATION
  10. ARIMIDEX [Suspect]
     Indication: BREAST CANCER
     Dates: start: 20080321, end: 20120206
  11. ASPIRIN [Concomitant]
     Indication: PRODUCT USED FOR UNKNOWN INDICATION

REACTIONS (3)
  - WEIGHT DECREASED [None]
  - BLOOD THYROID STIMULATING HORMONE DECREASED [None]
  - BREAST CANCER [None]
